FAERS Safety Report 7586529-6 (Version None)
Quarter: 2011Q3

REPORT INFORMATION
  Report Type: 
  Country: None (occurrence: None)
  Receive Date: 20110701
  Receipt Date: 20110621
  Transmission Date: 20111222
  Serious: Yes (Other)
  Sender: FDA-Public Use
  Company Number: CA-ROCHE-785424

PATIENT
  Sex: Female

DRUGS (5)
  1. PLAQUENIL [Concomitant]
     Route: 048
  2. BIRTH CONTROL PILL [Concomitant]
     Route: 048
  3. TOCILIZUMAB [Suspect]
     Indication: RHEUMATOID ARTHRITIS
     Route: 042
     Dates: start: 20110315, end: 20110614
  4. ATASOL [Concomitant]
     Route: 048
  5. NEXIUM [Concomitant]
     Route: 048

REACTIONS (1)
  - SYSTEMIC LUPUS ERYTHEMATOSUS [None]
